FAERS Safety Report 12861275 (Version 1)
Quarter: 2016Q4

REPORT INFORMATION
  Report Type: Report from Study
  Country: DE (occurrence: DE)
  Receive Date: 20161019
  Receipt Date: 20161019
  Transmission Date: 20170207
  Serious: Yes (Hospitalization)
  Sender: FDA-Public Use
  Company Number: DE-TEVA-702342GER

PATIENT
  Age: 53 Year
  Sex: Female
  Weight: 87 kg

DRUGS (5)
  1. PACLITAXEL. [Suspect]
     Active Substance: PACLITAXEL
     Indication: BREAST CANCER FEMALE
     Dosage: LAST DOSE PRIOR TO SAE: 04-MAR-2015
     Route: 042
     Dates: start: 20141223, end: 20150402
  2. SINUPRET [Concomitant]
     Active Substance: HERBALS
     Indication: BREAST CANCER FEMALE
     Dates: start: 20150121
  3. PANTOPRAZOL [Concomitant]
     Active Substance: PANTOPRAZOLE SODIUM
     Dosage: 20 UNKNOWN DAILY;
     Dates: start: 20150115
  4. IBUPROFEN. [Concomitant]
     Active Substance: IBUPROFEN
     Dosage: 600 UNKNOWN DAILY;
     Dates: start: 20141122
  5. MYOCET [Suspect]
     Active Substance: DOXORUBICIN
     Indication: BREAST CANCER FEMALE
     Dosage: LAST DOSE PRIOR TO SAE: 04-MAR-2015
     Route: 042
     Dates: start: 20141223, end: 20150402

REACTIONS (1)
  - Pneumonitis [Recovered/Resolved]

NARRATIVE: CASE EVENT DATE: 20150331
